FAERS Safety Report 17072424 (Version 1)
Quarter: 2019Q4

REPORT INFORMATION
  Report Type: Spontaneous
  Country: US (occurrence: US)
  Receive Date: 20191124
  Receipt Date: 20191124
  Transmission Date: 20200122
  Serious: Yes (Other)
  Sender: FDA-Public Use
  Company Number: None

PATIENT
  Age: 8 Year
  Sex: Male
  Weight: 36 kg

DRUGS (1)
  1. OSELTAMIVIR [Suspect]
     Active Substance: OSELTAMIVIR
     Indication: INFLUENZA
     Dosage: ?          QUANTITY:10 ML;?
     Route: 048
     Dates: start: 20191123, end: 20191123

REACTIONS (6)
  - Crying [None]
  - Vomiting [None]
  - Aggression [None]
  - Middle insomnia [None]
  - Screaming [None]
  - Hallucination [None]

NARRATIVE: CASE EVENT DATE: 20191123
